FAERS Safety Report 8356989-1 (Version None)
Quarter: 2012Q2

REPORT INFORMATION
  Report Type: 
  Country: None (occurrence: None)
  Receive Date: 20120514
  Receipt Date: 20120507
  Transmission Date: 20120825
  Serious: Yes (Death, Life-Threatening, Hospitalization)
  Sender: FDA-Public Use
  Company Number: BR-EISAI INC-E7389-00819-CLI-BR

PATIENT
  Sex: Female
  Weight: 60 kg

DRUGS (15)
  1. FLUOXETINE [Concomitant]
     Indication: DEPRESSION
     Route: 048
     Dates: start: 20081201
  2. DEXAMETHASONE [Concomitant]
     Indication: NAUSEA
     Route: 042
     Dates: start: 20090629, end: 20090805
  3. ONDANSETRON [Concomitant]
     Indication: NAUSEA
     Route: 042
     Dates: start: 20090729, end: 20090805
  4. NAPROXEN [Concomitant]
     Dosage: 500-1000MG
     Route: 048
     Dates: start: 20090805, end: 20090811
  5. OMEPRAZOLE [Concomitant]
     Indication: GASTRITIS
     Route: 048
     Dates: start: 20030601
  6. ONDANSETRON [Concomitant]
     Indication: VOMITING
  7. HYDROCHLOROTHIZIDE [Concomitant]
     Indication: HYPERTENSION
     Route: 048
     Dates: start: 20040601
  8. DEXAMETHASONE [Concomitant]
     Indication: VOMITING
  9. CHLORAMPHENICOL [Concomitant]
     Indication: SKIN LESION
     Dosage: UNKNOWN
     Route: 061
     Dates: start: 20090615
  10. ENALAPRIL MALEATE [Concomitant]
     Indication: HYPERTENSION
     Route: 048
     Dates: start: 20040601
  11. METHADONE HCL [Concomitant]
     Dosage: 15-20 MG
     Route: 048
     Dates: start: 20090725, end: 20090804
  12. PIDOLATE MAGNESIUM [Concomitant]
     Route: 048
     Dates: start: 20090805, end: 20090811
  13. EPIRUBICIN HYDROCHLORIDE [Suspect]
     Indication: BREAST CANCER
     Route: 042
     Dates: start: 20090729, end: 20090805
  14. CLONAZEPAM [Concomitant]
     Indication: INSOMNIA
     Route: 048
     Dates: start: 20081201
  15. LISADOR [Concomitant]
     Route: 048
     Dates: start: 20090805, end: 20090811

REACTIONS (3)
  - CONFUSIONAL STATE [None]
  - DYSPNOEA [None]
  - DEATH [None]
